FAERS Safety Report 17971464 (Version 1)
Quarter: 2020Q3

REPORT INFORMATION
  Report Type: Report from Study
  Country: None (occurrence: AR)
  Receive Date: 20200702
  Receipt Date: 20200702
  Transmission Date: 20201103
  Serious: Yes (Other)
  Sender: FDA-Public Use
  Company Number: AR-ABBVIE-20K-007-3466572-00

PATIENT
  Age: 68 Year
  Sex: Female

DRUGS (1)
  1. HUMIRA [Suspect]
     Active Substance: ADALIMUMAB
     Indication: PSORIASIS
     Route: 058
     Dates: start: 20161117

REACTIONS (5)
  - Hypoaesthesia [Unknown]
  - Herpes zoster [Recovering/Resolving]
  - Optic nerve disorder [Unknown]
  - Immunodeficiency [Unknown]
  - Eye ulcer [Unknown]

NARRATIVE: CASE EVENT DATE: 20200501
